FAERS Safety Report 20059079 (Version 1)
Quarter: 2021Q4

REPORT INFORMATION
  Report Type: Report from Study
  Country: US (occurrence: US)
  Receive Date: 20211111
  Receipt Date: 20211111
  Transmission Date: 20220303
  Serious: Yes (Hospitalization, Other)
  Sender: FDA-Public Use
  Company Number: US-TAKEDA-ALL1-2012-04050

PATIENT
  Age: 5 Year
  Sex: Male
  Weight: 22.676 kg

DRUGS (10)
  1. IDURSULFASE [Suspect]
     Active Substance: IDURSULFASE
     Indication: Mucopolysaccharidosis II
     Dosage: 12 MG, 1X/WEEK
     Route: 041
     Dates: start: 20100114
  2. IDURSULFASE [Suspect]
     Active Substance: IDURSULFASE
     Dosage: 6 MG, 1X/WEEK (0.44MG/KG)
     Route: 041
     Dates: start: 20081112
  3. CHLORAL HYDRATE [Concomitant]
     Active Substance: CHLORAL HYDRATE
     Indication: Product used for unknown indication
     Dosage: UNK UNK, UNKNOWN
     Route: 065
  4. METHYLPHENIDATE HYDROCHLORIDE [Concomitant]
     Active Substance: METHYLPHENIDATE HYDROCHLORIDE
     Indication: Product used for unknown indication
     Dosage: UNK UNK, UNKNOWN
     Route: 065
  5. LIDOCAINE\PRILOCAINE [Concomitant]
     Active Substance: LIDOCAINE\PRILOCAINE
     Indication: Product used for unknown indication
     Dosage: UNK UNK, UNKNOWN
     Route: 065
  6. SODIUM CHLORIDE [Concomitant]
     Active Substance: SODIUM CHLORIDE
     Indication: Product used for unknown indication
     Dosage: UNK UNK, UNKNOWN
     Route: 041
  7. ACETAMINOPHEN [Concomitant]
     Active Substance: ACETAMINOPHEN
     Indication: Premedication
     Dosage: 183 MG, UNKNOWN
     Route: 048
     Dates: start: 20081211
  8. HEPARIN [Concomitant]
     Active Substance: HEPARIN SODIUM
     Indication: Product used for unknown indication
     Dosage: UNK UNK, UNKNOWN
     Route: 065
  9. DIPHENHYDRAMINE [Concomitant]
     Active Substance: DIPHENHYDRAMINE
     Indication: Premedication
     Dosage: 12.2 MG, 1X/WEEK
     Route: 048
     Dates: start: 20081211
  10. EMLA                               /00675501/ [Concomitant]
     Indication: Pain
     Dosage: UNK, UNKNOWN
     Route: 065
     Dates: start: 20081211

REACTIONS (2)
  - Cerebrovascular accident [Unknown]
  - Endocarditis [Unknown]

NARRATIVE: CASE EVENT DATE: 20120825
